FAERS Safety Report 25005174 (Version 2)
Quarter: 2025Q1

REPORT INFORMATION
  Report Type: Report from Study
  Country: KR (occurrence: KR)
  Receive Date: 20250224
  Receipt Date: 20250228
  Transmission Date: 20250409
  Serious: Yes (Other)
  Sender: NOVARTIS
  Company Number: KR-002147023-NVSC2025KR028913

PATIENT
  Age: 54 Year
  Sex: Female

DRUGS (15)
  1. BEOVU [Suspect]
     Active Substance: BROLUCIZUMAB-DBLL
     Indication: Neovascular age-related macular degeneration
     Route: 031
     Dates: start: 20230902, end: 20230902
  2. BEOVU [Suspect]
     Active Substance: BROLUCIZUMAB-DBLL
     Route: 031
     Dates: start: 20231007, end: 20231007
  3. BEOVU [Suspect]
     Active Substance: BROLUCIZUMAB-DBLL
     Route: 031
     Dates: start: 20231127, end: 20231127
  4. Levocra [Concomitant]
     Indication: Evidence based treatment
     Route: 065
     Dates: start: 20230902, end: 202309
  5. Levocra [Concomitant]
     Route: 065
     Dates: start: 20231007, end: 20231009
  6. Levocra [Concomitant]
     Route: 065
     Dates: start: 20231127, end: 20231129
  7. Levocra [Concomitant]
     Route: 065
     Dates: start: 20231228, end: 20231230
  8. Levocra [Concomitant]
     Route: 065
     Dates: start: 20240201, end: 20240203
  9. Levocra [Concomitant]
     Route: 065
     Dates: start: 20240306, end: 20240308
  10. Levocra [Concomitant]
     Route: 065
     Dates: start: 20240418, end: 20240420
  11. Levocra [Concomitant]
     Route: 065
     Dates: start: 20240530, end: 20240601
  12. Hyalone [Concomitant]
     Indication: Dry eye
     Route: 065
     Dates: start: 20230701
  13. ALCAINE [Concomitant]
     Active Substance: PROPARACAINE HYDROCHLORIDE
     Indication: Premedication
     Route: 065
     Dates: start: 20230902, end: 20230902
  14. ALCAINE [Concomitant]
     Active Substance: PROPARACAINE HYDROCHLORIDE
     Route: 065
     Dates: start: 20231007, end: 20231007
  15. ALCAINE [Concomitant]
     Active Substance: PROPARACAINE HYDROCHLORIDE
     Route: 065
     Dates: start: 20231127, end: 20231127

REACTIONS (1)
  - Eye haemorrhage [Recovered/Resolved with Sequelae]

NARRATIVE: CASE EVENT DATE: 20231228
